FAERS Safety Report 18705018 (Version 1)
Quarter: 2021Q1

REPORT INFORMATION
  Report Type: Spontaneous
  Country: US (occurrence: US)
  Receive Date: 20210105
  Receipt Date: 20210105
  Transmission Date: 20210419
  Serious: No
  Sender: FDA-Public Use
  Company Number: US-ASTRAZENECA-2020SF68729

PATIENT
  Age: 24563 Day
  Sex: Female

DRUGS (2)
  1. SYMBICORT [Suspect]
     Active Substance: BUDESONIDE\FORMOTEROL FUMARATE DIHYDRATE
     Indication: CHRONIC OBSTRUCTIVE PULMONARY DISEASE
     Dosage: SYMBICORT 160/4.5 MCG ,SYMICORT 1 PUFF BID
     Route: 055
     Dates: start: 202010
  2. SYMBICORT [Suspect]
     Active Substance: BUDESONIDE\FORMOTEROL FUMARATE DIHYDRATE
     Indication: ASTHMA
     Dosage: SYMBICORT 160/4.5 MCG ,SYMICORT 1 PUFF BID
     Route: 055
     Dates: start: 202010

REACTIONS (7)
  - Lip injury [Not Recovered/Not Resolved]
  - Incorrect dose administered [Not Recovered/Not Resolved]
  - Intentional product misuse [Not Recovered/Not Resolved]
  - Product taste abnormal [Unknown]
  - Oropharyngeal discomfort [Unknown]
  - Cough [Unknown]
  - Oral contusion [Not Recovered/Not Resolved]

NARRATIVE: CASE EVENT DATE: 202010
